FAERS Safety Report 8583287-3 (Version None)
Quarter: 2012Q3

REPORT INFORMATION
  Report Type: 
  Country: None (occurrence: None)
  Receive Date: 20120809
  Receipt Date: 20120806
  Transmission Date: 20120928
  Serious: Yes (Death)
  Sender: FDA-Public Use
  Company Number: AU-B.I. PHARMACEUTICALS,INC./RIDGEFIELD-2012-AU-01092AU

PATIENT
  Age: 86 Year
  Sex: Male

DRUGS (4)
  1. PERINDOPRIL ERBUMINE [Concomitant]
     Indication: HYPERTENSION
  2. PRADAXA [Suspect]
     Indication: CEREBROVASCULAR ACCIDENT PROPHYLAXIS
     Dosage: 300 MG
     Dates: start: 20110927
  3. PRADAXA [Suspect]
     Indication: ATRIAL FIBRILLATION
     Dosage: 220 MG
  4. METFORMIN HCL [Concomitant]
     Indication: DIABETES MELLITUS

REACTIONS (2)
  - MALIGNANT PLEURAL EFFUSION [None]
  - COUGH [None]
